FAERS Safety Report 7285424-X (Version None)
Quarter: 2011Q1

REPORT INFORMATION
  Report Type: 
  Country: None (occurrence: None)
  Receive Date: 20110121
  Receipt Date: 20050811
  Transmission Date: 20110831
  Serious: No
  Sender: FDA-Public Use
  Company Number: 017

PATIENT
  Sex: Male
  Weight: 108.8633 kg

DRUGS (4)
  1. ZOLOFT [Concomitant]
  2. FAZACLO ODT [Suspect]
     Indication: SCHIZOPHRENIA
     Dosage: 600MG DAILY
     Dates: start: 20050711, end: 20050811
  3. RANITIDINE [Concomitant]
  4. RISPERDAL [Concomitant]

REACTIONS (1)
  - DIARRHOEA [None]
